FAERS Safety Report 5589566-6 (Version None)
Quarter: 2007Q4

REPORT INFORMATION
  Report Type: 
  Country: None (occurrence: None)
  Receive Date: 20071210
  Receipt Date: 20070402
  Transmission Date: 20080405
  Serious: Yes (Other)
  Sender: FDA-Public Use
  Company Number: 490916

PATIENT
  Sex: Male

DRUGS (2)
  1. VALIUM [Suspect]
     Indication: EPILEPSY
  2. UNSPECIFIED MEDICATIONS (GENERIC UNKNOWN) [Suspect]
     Indication: EPILEPSY

REACTIONS (2)
  - CONDITION AGGRAVATED [None]
  - CONVULSION [None]
